FAERS Safety Report 14960059 (Version 1)
Quarter: 2018Q2

REPORT INFORMATION
  Report Type: Report from Study
  Country: None (occurrence: BE)
  Receive Date: 20180531
  Receipt Date: 20180531
  Transmission Date: 20180711
  Serious: Yes (Other)
  Sender: FDA-Public Use
  Company Number: BE-ABBVIE-18K-013-2373327-00

PATIENT
  Sex: Male

DRUGS (3)
  1. DUODOPA [Suspect]
     Active Substance: CARBIDOPA\LEVODOPA
     Dosage: MD= 13ML??CD= 3.7ML/HR DURING 16HRS ??ED= 2.5ML
     Route: 050
     Dates: start: 20180215
  2. MIRAPEXIN [Concomitant]
     Active Substance: PRAMIPEXOLE
     Indication: PRODUCT USED FOR UNKNOWN INDICATION
  3. DUODOPA [Suspect]
     Active Substance: CARBIDOPA\LEVODOPA
     Indication: PARKINSON^S DISEASE
     Dosage: MD=12ML?CD= BETWEEN 3.4 AND 7 ML/HR DURING 16HRS ?ED= BETWEEN 1.5 AND 4ML
     Route: 050
     Dates: start: 20171117, end: 20180215

REACTIONS (2)
  - Arteriosclerosis coronary artery [Unknown]
  - Ischaemia [Unknown]
